FAERS Safety Report 6522582-6 (Version None)
Quarter: 2009Q4

REPORT INFORMATION
  Report Type: 
  Country: None (occurrence: None)
  Receive Date: 20091224
  Receipt Date: 20091210
  Transmission Date: 20100525
  Serious: Yes (Other)
  Sender: FDA-Public Use
  Company Number: MC200900431

PATIENT

DRUGS (1)
  1. CLEVIPREX [Suspect]
     Indication: HYPERTENSION
     Dosage: INTRAVENOUS
     Route: 042

REACTIONS (1)
  - ARRHYTHMIA [None]
